FAERS Safety Report 21926178 (Version 1)
Quarter: 2023Q1

REPORT INFORMATION
  Report Type: Report from Study
  Country: US (occurrence: US)
  Receive Date: 20230130
  Receipt Date: 20230130
  Transmission Date: 20230418
  Serious: Yes (Other)
  Sender: FDA-Public Use
  Company Number: US-BAYER-2023A009378

PATIENT
  Age: 58 Year
  Sex: Male

DRUGS (2)
  1. STIVARGA [Suspect]
     Active Substance: REGORAFENIB
     Indication: Colorectal cancer
     Dosage: 80 MG, QD, FOR 21 DAYS ON, THEN 7 DAYS OFF
     Dates: start: 20230110, end: 20230118
  2. OPDIVO [Concomitant]
     Active Substance: NIVOLUMAB
     Indication: Neoplasm malignant
     Dosage: UNK

REACTIONS (2)
  - Neuropathy peripheral [Recovering/Resolving]
  - Off label use [None]

NARRATIVE: CASE EVENT DATE: 20230110
